FAERS Safety Report 18735726 (Version 6)
Quarter: 2021Q2

REPORT INFORMATION
  Report Type: Spontaneous
  Country: GB (occurrence: GB)
  Receive Date: 20210113
  Receipt Date: 20210405
  Transmission Date: 20210717
  Serious: Yes (Hospitalization, Other)
  Sender: FDA-Public Use
  Company Number: GB-MYLANLABS-2021M1001463

PATIENT
  Age: 59 Year
  Sex: Female

DRUGS (21)
  1. ADALIMUMAB [Suspect]
     Active Substance: ADALIMUMAB
     Dosage: 80 MG, CYCLIC (WEEK TWO)
     Route: 058
  2. INFLIXIMAB [Suspect]
     Active Substance: INFLIXIMAB
     Dosage: 1 EVERY 2 MONTHS (Q2MO)
     Route: 042
  3. ADALIMUMAB [Suspect]
     Active Substance: ADALIMUMAB
     Dosage: 40 MG (WEEK FOUR)
     Route: 058
  4. ADALIMUMAB [Suspect]
     Active Substance: ADALIMUMAB
     Dosage: 40 MILLIGRAM MAINTENANCE
     Route: 058
  5. REMICADE [Suspect]
     Active Substance: INFLIXIMAB
     Indication: PRODUCT USED FOR UNKNOWN INDICATION
     Dosage: UNK, UNKNOWN, STOPPED SEVEN WEEKS AGO
     Route: 042
  6. REMICADE [Suspect]
     Active Substance: INFLIXIMAB
     Dosage: UNK, QD, 8QD (STOPPED SEVEN WEEKS AGO)
     Route: 042
  7. ADALIMUMAB [Suspect]
     Active Substance: ADALIMUMAB
     Indication: COLITIS ULCERATIVE
     Dosage: 40 MG, Q2W (MAINTENANCE)
     Route: 058
  8. ADALIMUMAB [Suspect]
     Active Substance: ADALIMUMAB
     Dosage: 40 MG, Q2W (MAINTENANCE)
     Route: 058
  9. REMICADE [Suspect]
     Active Substance: INFLIXIMAB
     Dosage: UNK EVERY 8 WEEKS (STOPPED SEVEN WEEKS AGO)
     Route: 042
  10. INFLIXIMAB [Suspect]
     Active Substance: INFLIXIMAB
     Dosage: 8QD (STOPPED SEVEN WEEKS AGO)
     Route: 042
  11. ADALIMUMAB [Suspect]
     Active Substance: ADALIMUMAB
     Dosage: 160 MG (WEEK ZERO)
     Route: 058
     Dates: start: 20200814
  12. INFLIXIMAB [Suspect]
     Active Substance: INFLIXIMAB
     Indication: PRODUCT USED FOR UNKNOWN INDICATION
     Dosage: UNK, CYCLIC (EVERY 8 WEEK, STOPPED SEVEN WEEKS AGO 1 TIME EVERY 8 WEEK)
     Route: 042
  13. INFLIXIMAB [Suspect]
     Active Substance: INFLIXIMAB
     Dosage: UNK UNK, BIMONTHLY (EVERY 8 WEEK, UNKNOWN, STOPPED SEVEN WEEKS AGO)
     Route: 042
  14. REMICADE [Suspect]
     Active Substance: INFLIXIMAB
     Dosage: UNK Q2MO
     Route: 042
  15. INFLIXIMAB [Suspect]
     Active Substance: INFLIXIMAB
     Indication: PRODUCT USED FOR UNKNOWN INDICATION
     Dosage: Q2MO
     Route: 042
  16. IMRALDI [Suspect]
     Active Substance: ADALIMUMAB
     Indication: PRODUCT USED FOR UNKNOWN INDICATION
     Dosage: 40 MILLIGRAM, Q2W
     Route: 058
  17. ADALIMUMAB [Suspect]
     Active Substance: ADALIMUMAB
     Dosage: 80 MG (WEEK TWO)
     Route: 058
  18. ADALIMUMAB [Suspect]
     Active Substance: ADALIMUMAB
     Dosage: 40 MG, Q2W (WEEK FOUR)
     Route: 058
  19. INFLIXIMAB [Suspect]
     Active Substance: INFLIXIMAB
     Dosage: 8QD (STOPPED SEVEN WEEKS AGO)
     Route: 042
  20. INFLIXIMAB [Suspect]
     Active Substance: INFLIXIMAB
     Dosage: UNK, EVERY 8 WEEKS (UNKNOWN, STOPPED SEVEN WEEKS AGO)
     Route: 065
     Dates: start: 2020
  21. INFLIXIMAB [Suspect]
     Active Substance: INFLIXIMAB
     Dosage: UNK UNK, Q2MO (1 TIME EVERY 8 WEEK)
     Route: 042

REACTIONS (12)
  - Diarrhoea [Unknown]
  - Sleep disorder [Unknown]
  - Drug ineffective [Unknown]
  - Headache [Unknown]
  - Ill-defined disorder [Unknown]
  - Weight decreased [Unknown]
  - Asthenia [Unknown]
  - Anxiety [Unknown]
  - Injection site pain [Unknown]
  - Fatigue [Unknown]
  - Head discomfort [Unknown]
  - Tooth extraction [Unknown]
